FAERS Safety Report 7545149-X (Version None)
Quarter: 2011Q2

REPORT INFORMATION
  Report Type: 
  Country: None (occurrence: None)
  Receive Date: 20110610
  Receipt Date: 20110610
  Transmission Date: 20111010
  Serious: No
  Sender: FDA-Public Use
  Company Number: None

PATIENT

DRUGS (7)
  1. FOSINOPRIL SODIUM [Suspect]
     Indication: HYPERTENSION
     Dosage: 40MG ONCE A DAY
  2. GLIPIZIDE [Suspect]
     Indication: DIABETES MELLITUS
     Dosage: 2.5 MG ONCE A DAY
  3. LOVASTATIN [Suspect]
     Indication: BLOOD CHOLESTEROL INCREASED
     Dosage: 40MG AT NIGHT ONCE A DAY
  4. NIFEDIPINE [Suspect]
     Indication: HYPERTENSION
     Dosage: 60 MG 1X A DAY AT NIGHT
  5. METFORMIN HCL [Suspect]
     Indication: DIABETES MELLITUS
     Dosage: 750 MG 2X A DAY
  6. CARVEDILOL [Suspect]
     Indication: HYPERTENSION
     Dosage: 12.5 MG 2X DAY
  7. ZETIA [Suspect]
     Indication: BLOOD CHOLESTEROL INCREASED
     Dosage: 10MG BY MOUTH EVERY OTHER DAY AT NIGHT

REACTIONS (1)
  - ALOPECIA [None]
